FAERS Safety Report 24923646 (Version 1)
Quarter: 2025Q1

REPORT INFORMATION
  Report Type: Spontaneous
  Country: CN (occurrence: CN)
  Receive Date: 20250204
  Receipt Date: 20250204
  Transmission Date: 20250409
  Serious: Yes (Other)
  Sender: OTSUKA
  Company Number: CN-OTSUKA-2025_002405

PATIENT
  Age: 30 Year
  Sex: Female
  Weight: 46 kg

DRUGS (1)
  1. ABILIFY [Suspect]
     Active Substance: ARIPIPRAZOLE
     Indication: Schizophrenia
     Dosage: 20 MG, QD
     Route: 048
     Dates: start: 20241212, end: 20250127

REACTIONS (1)
  - Eye movement disorder [Recovering/Resolving]

NARRATIVE: CASE EVENT DATE: 20250102
